FAERS Safety Report 19204134 (Version 1)
Quarter: 2021Q2

REPORT INFORMATION
  Report Type: Spontaneous
  Country: US (occurrence: US)
  Receive Date: 20210503
  Receipt Date: 20210503
  Transmission Date: 20210717
  Serious: No
  Sender: FDA-Public Use
  Company Number: US-AMGEN-USASP2021064449

PATIENT
  Sex: Female

DRUGS (10)
  1. DOXYCYCLINE [DOXYCYCLINE HYDROCHLORIDE] [Suspect]
     Active Substance: DOXYCYCLINE HYDROCHLORIDE
     Indication: BRONCHITIS
     Dosage: 100 MILLIGRAM, BID
     Route: 065
     Dates: start: 20210421
  2. VITAMIN D [COLECALCIFEROL] [Concomitant]
     Active Substance: CHOLECALCIFEROL
     Dosage: UNK
  3. PROZAC [Concomitant]
     Active Substance: FLUOXETINE HYDROCHLORIDE
     Indication: DEPRESSION
  4. BABY ASPIRIN [Concomitant]
     Active Substance: ASPIRIN
  5. POTASSIUM [POTASSIUM CHLORIDE] [Concomitant]
     Active Substance: POTASSIUM CHLORIDE
     Dosage: UNK
  6. METFORMIN [Concomitant]
     Active Substance: METFORMIN HYDROCHLORIDE
     Indication: DIABETES MELLITUS
     Dosage: UNK
  7. FLUOXETINE [Concomitant]
     Active Substance: FLUOXETINE HYDROCHLORIDE
     Indication: DEPRESSION
     Dosage: 10 MILLIGRAM
  8. OTEZLA [Suspect]
     Active Substance: APREMILAST
     Indication: PSORIATIC ARTHROPATHY
     Dosage: 30 MILLIGRAM, BID
     Route: 065
  9. DOXYCYCLINE [DOXYCYCLINE HYDROCHLORIDE] [Suspect]
     Active Substance: DOXYCYCLINE HYDROCHLORIDE
     Indication: COUGH
  10. METOPROLOL. [Concomitant]
     Active Substance: METOPROLOL
     Indication: BLOOD PRESSURE ABNORMAL

REACTIONS (4)
  - Weight decreased [Not Recovered/Not Resolved]
  - Bronchitis [Recovering/Resolving]
  - Diarrhoea [Not Recovered/Not Resolved]
  - Nausea [Not Recovered/Not Resolved]

NARRATIVE: CASE EVENT DATE: 2021
